FAERS Safety Report 8162896 (Version 4)
Quarter: 2014Q1

REPORT INFORMATION
  Report Type: Spontaneous
  Country: US (occurrence: US)
  Receive Date: 20110930
  Receipt Date: 20140327
  Transmission Date: 20141002
  Serious: Yes (Hospitalization, Other)
  Sender: FDA-Public Use
  Company Number: US-BAYER-2011-091600

PATIENT
  Age: 24 Year
  Sex: Female
  Weight: 96.15 kg

DRUGS (7)
  1. YASMIN [Suspect]
     Indication: CONTRACEPTION
     Dosage: UNK
     Dates: start: 200305, end: 200606
  2. PERCOCET [Concomitant]
     Dosage: 5 MG, 1-2 Q 4-6 [HOURS] PRN
  3. MOTRIN [Concomitant]
     Indication: PAIN
     Dosage: 800 MG, 1 Q 8 [HOURS] PRN
  4. PRENATAL VITAMINS [Concomitant]
  5. PITOCIN [Concomitant]
  6. DEMEROL [Concomitant]
     Dosage: 25 MG, UNK
     Route: 042
  7. ZOFRAN [Concomitant]
     Dosage: 4 MG, UNK
     Route: 042

REACTIONS (9)
  - Cholecystitis chronic [None]
  - Cholelithiasis [Recovering/Resolving]
  - Biliary colic [Recovering/Resolving]
  - Injury [Recovering/Resolving]
  - Pain [Recovering/Resolving]
  - General physical health deterioration [None]
  - Anxiety [None]
  - Emotional distress [None]
  - Anhedonia [None]
